FAERS Safety Report 6764996-5 (Version None)
Quarter: 2010Q2

REPORT INFORMATION
  Report Type: 
  Country: None (occurrence: None)
  Receive Date: 20100610
  Receipt Date: 20100602
  Transmission Date: 20101027
  Serious: Yes (Other)
  Sender: FDA-Public Use
  Company Number: US-GENENTECH-300409

PATIENT
  Sex: Female
  Weight: 54.422 kg

DRUGS (6)
  1. RITUXAN [Suspect]
     Indication: RHEUMATOID ARTHRITIS
     Dosage: 1000 UNK, UNK
     Route: 042
     Dates: start: 20100323, end: 20100406
  2. RITUXAN [Suspect]
     Indication: SJOGREN'S SYNDROME
  3. FISH OIL [Concomitant]
     Indication: DRUG USE FOR UNKNOWN INDICATION
  4. PREDNISONE [Concomitant]
     Indication: DRUG USE FOR UNKNOWN INDICATION
  5. RESTASIS [Concomitant]
     Indication: DRUG USE FOR UNKNOWN INDICATION
  6. FLEX PROTEX [Concomitant]
     Indication: DRUG USE FOR UNKNOWN INDICATION

REACTIONS (1)
  - RASH GENERALISED [None]
